FAERS Safety Report 15021349 (Version 1)
Quarter: 2018Q2

REPORT INFORMATION
  Report Type: Spontaneous
  Country: US (occurrence: US)
  Receive Date: 20180601
  Receipt Date: 20180601
  Transmission Date: 20180711
  Serious: Yes (Other)
  Sender: FDA-Public Use
  Company Number: None

PATIENT
  Sex: Female

DRUGS (6)
  1. APAP/CODEINE [Concomitant]
     Active Substance: ACETAMINOPHEN\CODEINE PHOSPHATE
  2. CIPROFLOXACN [Concomitant]
     Active Substance: CIPROFLOXACIN
  3. FOLIC ACID. [Concomitant]
     Active Substance: FOLIC ACID
  4. METRONIDAZOL [Concomitant]
     Active Substance: METRONIDAZOLE
  5. HYDROXYUREA. [Concomitant]
     Active Substance: HYDROXYUREA
  6. JADENU [Suspect]
     Active Substance: DEFERASIROX
     Indication: SICKLE CELL ANAEMIA WITH CRISIS
     Route: 048
     Dates: start: 20180503

REACTIONS (4)
  - Asthenia [None]
  - Fatigue [None]
  - Diarrhoea haemorrhagic [None]
  - Abdominal pain [None]
